FAERS Safety Report 7009812-1 (Version None)
Quarter: 2010Q3

REPORT INFORMATION
  Report Type: 
  Country: None (occurrence: None)
  Receive Date: 20100923
  Receipt Date: 20100914
  Transmission Date: 20110219
  Serious: Yes (Hospitalization)
  Sender: FDA-Public Use
  Company Number: NL-AMGEN-US370042

PATIENT
  Age: 57 Year
  Sex: Female

DRUGS (5)
  1. ENBREL [Suspect]
     Indication: RHEUMATOID ARTHRITIS
     Route: 058
     Dates: start: 20081001, end: 20090801
  2. ENBREL [Suspect]
  3. METHOTREXATE [Suspect]
     Indication: RHEUMATOID ARTHRITIS
  4. ATENOLOL [Concomitant]
  5. LANTUS [Concomitant]
     Indication: DIABETES MELLITUS

REACTIONS (3)
  - BURNS SECOND DEGREE [None]
  - BURNS THIRD DEGREE [None]
  - PNEUMONIA [None]
